FAERS Safety Report 12108602 (Version 1)
Quarter: 2016Q1

REPORT INFORMATION
  Report Type: Spontaneous
  Country: US (occurrence: None)
  Receive Date: 20160222
  Receipt Date: 20160222
  Transmission Date: 20160526
  Serious: Yes (Disabling, Other)
  Sender: FDA-Public Use
  Company Number: None

PATIENT
  Age: 47 Year
  Sex: Male
  Weight: 104.33 kg

DRUGS (16)
  1. LISINOPRIL. [Concomitant]
     Active Substance: LISINOPRIL
  2. VICODEN [Concomitant]
  3. TRINEXYPHENADYL [Concomitant]
  4. NALTREXONE [Concomitant]
     Active Substance: NALTREXONE
  5. PROPRANOLOL [Concomitant]
     Active Substance: PROPRANOLOL\PROPRANOLOL HYDROCHLORIDE
  6. DIPHENHYDRAMINE. [Concomitant]
     Active Substance: DIPHENHYDRAMINE
  7. ASA [Concomitant]
     Active Substance: ASPIRIN
  8. OLANZAPINE. [Concomitant]
     Active Substance: OLANZAPINE
  9. LITHIUM CARBONATE. [Suspect]
     Active Substance: LITHIUM CARBONATE
     Indication: MANIA
     Dosage: LITHIUM AND ZYPREXA, ONCE DAILY, TAKEN BY MOUTH
  10. LITHIUM. [Concomitant]
     Active Substance: LITHIUM
  11. LITHIUM CARBONATE. [Suspect]
     Active Substance: LITHIUM CARBONATE
     Indication: DELUSION
     Dosage: LITHIUM AND ZYPREXA, ONCE DAILY, TAKEN BY MOUTH
  12. OMEPRAZOLE. [Concomitant]
     Active Substance: OMEPRAZOLE
  13. NAPROXEN. [Concomitant]
     Active Substance: NAPROXEN
  14. PRAMIPEXOLE. [Concomitant]
     Active Substance: PRAMIPEXOLE
  15. PREVASTIN [Concomitant]
  16. VALIUM [Concomitant]
     Active Substance: DIAZEPAM

REACTIONS (2)
  - Gastrointestinal disorder [None]
  - Diabetes mellitus [None]

NARRATIVE: CASE EVENT DATE: 20160219
